FAERS Safety Report 7384642-X (Version None)
Quarter: 2011Q1

REPORT INFORMATION
  Report Type: 
  Country: None (occurrence: None)
  Receive Date: 20110323
  Receipt Date: 20110314
  Transmission Date: 20110831
  Serious: Yes (Other)
  Sender: FDA-Public Use
  Company Number: A0918036A

PATIENT
  Age: 70 Year
  Sex: Female

DRUGS (8)
  1. INSULIN ASPART [Concomitant]
  2. MICONAZOLE NITRATE [Suspect]
     Indication: FUNGAL INFECTION
     Dosage: 1 APPLICATION(S) PER DAY, TOPICAL
     Route: 061
     Dates: start: 20060301
  3. METFORMIN HYDROCHLORIDE [Concomitant]
  4. VITAMIN D [Concomitant]
  5. LISINOPRIL [Concomitant]
  6. ATORVASTATIN CALCIUM [Concomitant]
  7. INT./LONG-ACTING INSULIN [Concomitant]
  8. PIOGLITAZONE [Concomitant]

REACTIONS (2)
  - EYE HAEMORRHAGE [None]
  - EYE IRRITATION [None]
